FAERS Safety Report 8380927-9 (Version None)
Quarter: 2012Q1

REPORT INFORMATION
  Report Type: 
  Country: None (occurrence: None)
  Receive Date: 20120323
  Receipt Date: 20110316
  Transmission Date: 20120608
  Serious: Yes (Other)
  Sender: FDA-Public Use
  Company Number: 163-21880-11023163

PATIENT
  Age: 71 Year
  Sex: Female
  Weight: 78.9259 kg

DRUGS (8)
  1. ALENDRONATE SODIUM [Concomitant]
  2. REVLIMID [Suspect]
     Indication: MULTIPLE MYELOMA
     Dosage: 10 MG, DAILY X 21 DAYS, PO
     Route: 048
     Dates: start: 20110215
  3. ENABLEX [Concomitant]
  4. VITAMIN TAB [Concomitant]
  5. IRON [Concomitant]
  6. AMIODARONE HCL [Concomitant]
  7. AMLODIPINE BESYLATE [Concomitant]
  8. METOPROLOL [Concomitant]

REACTIONS (3)
  - DIZZINESS [None]
  - PRURITUS [None]
  - FATIGUE [None]
